FAERS Safety Report 9481504 (Version 2)
Quarter: 2013Q4

REPORT INFORMATION
  Report Type: Spontaneous
  Country: CA (occurrence: CA)
  Receive Date: 20130828
  Receipt Date: 20131001
  Transmission Date: 20140711
  Serious: Yes (Other)
  Sender: FDA-Public Use
  Company Number: CHPA2013CA013371

PATIENT
  Age: 54 Year
  Sex: Male

DRUGS (5)
  1. BUCKLEY^S MIXTURE [Suspect]
     Indication: PULMONARY CONGESTION
     Dosage: 3-6 TSP, UNK
     Route: 048
     Dates: start: 1980, end: 2012
  2. BUCKLEY^S CHEST CONGESTION [Suspect]
     Indication: PULMONARY CONGESTION
     Dosage: 3-6 TSP, UNK
     Route: 048
     Dates: end: 2012
  3. BUCKLEY^S COMPLETE [Suspect]
     Indication: PULMONARY CONGESTION
     Dosage: 3-6 TSP, UNK
     Route: 048
     Dates: end: 2012
  4. BUCKLEY^S UNKNOWN [Suspect]
     Indication: PULMONARY CONGESTION
     Dosage: UNK, UNK
     Route: 048
  5. IBUPROFEN [Suspect]
     Indication: ARTHRALGIA
     Dosage: UNK, UNK
     Route: 048

REACTIONS (9)
  - Arthritis [Not Recovered/Not Resolved]
  - Arthralgia [Not Recovered/Not Resolved]
  - Systemic lupus erythematosus [Not Recovered/Not Resolved]
  - Painful respiration [Not Recovered/Not Resolved]
  - Dyspnoea [Not Recovered/Not Resolved]
  - Abdominal discomfort [Unknown]
  - Therapeutic response unexpected [Unknown]
  - Off label use [Unknown]
  - Therapeutic response decreased [Unknown]
